FAERS Safety Report 4953411-X (Version None)
Quarter: 2006Q1

REPORT INFORMATION
  Report Type: 
  Country: None (occurrence: None)
  Receive Date: 20060131
  Receipt Date: 20051102
  Transmission Date: 20060701
  Serious: Yes (Hospitalization)
  Sender: FDA-Public Use
  Company Number: 8013102

PATIENT
  Age: 59 Year
  Sex: Female

DRUGS (5)
  1. KEPPRA [Suspect]
     Indication: DYSKINESIA
     Dosage: 250 MG /D PO
     Route: 048
     Dates: start: 20050916, end: 20051005
  2. KEPPRA [Suspect]
     Indication: DYSKINESIA
     Dosage: 500 MG /D PO
     Route: 048
     Dates: start: 20051005, end: 20051005
  3. KEPPRA [Suspect]
     Indication: DYSKINESIA
     Dosage: 250 MG /D PO
     Route: 048
     Dates: start: 20051006, end: 20051017
  4. ROBITUSSIN [Concomitant]
  5. LEVODOPA [Concomitant]

REACTIONS (2)
  - AGGRESSION [None]
  - HALLUCINATION, VISUAL [None]
